FAERS Safety Report 8957079 (Version 2)
Quarter: 2012Q4

REPORT INFORMATION
  Report Type: Report from Study
  Country: DE (occurrence: DE)
  Receive Date: 20121210
  Receipt Date: 20121219
  Transmission Date: 20130627
  Serious: Yes (Death, Other)
  Sender: FDA-Public Use
  Company Number: DE-CELGENEUS-062-21660-12113897

PATIENT
  Age: 61 Year
  Sex: Female

DRUGS (3)
  1. ABRAXANE [Suspect]
     Indication: METASTATIC BREAST CANCER
     Route: 065
     Dates: start: 20111130
  2. ABRAXANE [Suspect]
     Route: 065
     Dates: end: 20120112
  3. DENOSUMAB [Concomitant]
     Indication: METASTATIC BREAST CANCER
     Route: 065
     Dates: start: 201108

REACTIONS (3)
  - Breast cancer metastatic [Fatal]
  - Anaemia [Recovered/Resolved]
  - Neutropenia [Recovered/Resolved]
